FAERS Safety Report 18719176 (Version 1)
Quarter: 2021Q1

REPORT INFORMATION
  Report Type: Spontaneous
  Country: US (occurrence: US)
  Receive Date: 20210108
  Receipt Date: 20210108
  Transmission Date: 20210419
  Serious: No
  Sender: FDA-Public Use
  Company Number: US-PFIZER INC-2021007537

PATIENT
  Age: 66 Year
  Sex: Male

DRUGS (1)
  1. EFFEXOR XR [Suspect]
     Active Substance: VENLAFAXINE HYDROCHLORIDE
     Dosage: UNK

REACTIONS (8)
  - Somnolence [Unknown]
  - Speech disorder [Unknown]
  - Bradyphrenia [Unknown]
  - Intentional dose omission [Unknown]
  - Feeling abnormal [Unknown]
  - Lethargy [Unknown]
  - Vomiting [Unknown]
  - Fatigue [Unknown]
